FAERS Safety Report 9783112 (Version 1)
Quarter: 2013Q4

REPORT INFORMATION
  Report Type: Spontaneous
  Country: FR (occurrence: FR)
  Receive Date: 20131226
  Receipt Date: 20131226
  Transmission Date: 20140711
  Serious: Yes (Hospitalization, Other)
  Sender: FDA-Public Use
  Company Number: FR-PFIZER INC-2013368019

PATIENT
  Age: 79 Year
  Sex: Male

DRUGS (9)
  1. CORDARONE [Suspect]
     Indication: ATRIAL FIBRILLATION
     Dosage: 1 DF, DAILY
     Route: 048
  2. PLAVIX [Interacting]
     Indication: MYOCARDIAL ISCHAEMIA
     Dosage: 1 DF, DAILY
     Route: 048
     Dates: end: 20131102
  3. SINTROM [Interacting]
     Indication: PROPHYLAXIS
     Dosage: 0.25 DF, DAILY
     Route: 048
     Dates: end: 20131102
  4. INSPRA [Concomitant]
     Dosage: UNK
  5. DETENSIEL [Concomitant]
     Dosage: UNK
  6. LASILIX [Concomitant]
     Dosage: UNK
  7. COVERSYL [Concomitant]
     Dosage: UNK
  8. INEGY [Concomitant]
     Dosage: UNK
  9. ALLOPURINOL [Concomitant]
     Dosage: UNK

REACTIONS (3)
  - Drug interaction [Unknown]
  - Haematoma [Recovered/Resolved with Sequelae]
  - Renal failure [Unknown]
